FAERS Safety Report 19894089 (Version 2)
Quarter: 2021Q4

REPORT INFORMATION
  Report Type: Spontaneous
  Country: ES (occurrence: ES)
  Receive Date: 20210929
  Receipt Date: 20211111
  Transmission Date: 20220303
  Serious: Yes (Other)
  Sender: FDA-Public Use
  Company Number: ES-NOVARTISPH-NVSC2021ES219825

PATIENT
  Age: 81 Year
  Sex: Male

DRUGS (9)
  1. ELTROMBOPAG OLAMINE [Suspect]
     Active Substance: ELTROMBOPAG OLAMINE
     Indication: Immune thrombocytopenia
     Dosage: UNK
     Route: 065
  2. ELTROMBOPAG OLAMINE [Suspect]
     Active Substance: ELTROMBOPAG OLAMINE
     Indication: Antiphospholipid syndrome
     Dosage: UNK (EXPIRED IN MARCH AND APR)
     Route: 065
     Dates: start: 20210325
  3. ELTROMBOPAG OLAMINE [Suspect]
     Active Substance: ELTROMBOPAG OLAMINE
     Dosage: UNK (EXPIRED IN MAY AND JUN)
     Route: 065
     Dates: start: 20210325
  4. BLEOMYCIN\DACARBAZINE\DOXORUBICIN\VINBLASTINE [Concomitant]
     Active Substance: BLEOMYCIN\DACARBAZINE\DOXORUBICIN\VINBLASTINE
     Indication: Product used for unknown indication
     Dosage: UNK
     Route: 065
  5. LOSARTAN [Concomitant]
     Active Substance: LOSARTAN
     Indication: Product used for unknown indication
     Dosage: 25 MG, QD
     Route: 065
  6. XALATAN [Concomitant]
     Active Substance: LATANOPROST
     Indication: Product used for unknown indication
     Dosage: UNK
     Route: 065
  7. SIMVASTATIN [Concomitant]
     Active Substance: SIMVASTATIN
     Indication: Product used for unknown indication
     Dosage: 20 MG, QD
     Route: 065
  8. CALCIUM\VITAMIN D [Concomitant]
     Active Substance: CALCIUM\VITAMIN D
     Indication: Product used for unknown indication
     Dosage: UNK
     Route: 065
  9. OMEPRAZOLE [Concomitant]
     Active Substance: OMEPRAZOLE
     Indication: Product used for unknown indication
     Dosage: UNK
     Route: 065

REACTIONS (4)
  - Tubulointerstitial nephritis [Not Recovered/Not Resolved]
  - Renal failure [Not Recovered/Not Resolved]
  - Acute kidney injury [Unknown]
  - Product use in unapproved indication [Unknown]
